FAERS Safety Report 24960439 (Version 5)
Quarter: 2025Q1

REPORT INFORMATION
  Report Type: Spontaneous
  Country: IN (occurrence: IN)
  Receive Date: 20250212
  Receipt Date: 20250321
  Transmission Date: 20250409
  Serious: Yes (Other)
  Sender: PFIZER
  Company Number: IN-PFIZER INC-202500013640

PATIENT
  Age: 62 Year
  Sex: Female

DRUGS (6)
  1. LORLATINIB [Suspect]
     Active Substance: LORLATINIB
     Dosage: 100 MG, 1X/DAY (ONCE DAILY)
     Route: 048
     Dates: start: 20241226
  2. LORLATINIB [Suspect]
     Active Substance: LORLATINIB
     Dosage: 100 MG, 1X/DAY (ONCE DAILY)
     Route: 048
     Dates: start: 20250101
  3. GLIPTAGREAT M [Concomitant]
  4. TELPRES LN [Concomitant]
  5. GLIZID MR [Concomitant]
  6. ENTEHEP [Concomitant]

REACTIONS (40)
  - Gastrointestinal oedema [Unknown]
  - Retinal degeneration [Not Recovered/Not Resolved]
  - Blood glucose increased [Not Recovered/Not Resolved]
  - Weight fluctuation [Unknown]
  - Flatulence [Not Recovered/Not Resolved]
  - Abdominal distension [Not Recovered/Not Resolved]
  - Hyperchlorhydria [Unknown]
  - Dyspepsia [Unknown]
  - Pain [Unknown]
  - Movement disorder [Unknown]
  - Fear of disease [Unknown]
  - Tension [Unknown]
  - Vomiting [Unknown]
  - Nausea [Unknown]
  - Anxiety [Unknown]
  - Stress [Unknown]
  - Depression [Unknown]
  - Asthenia [Not Recovered/Not Resolved]
  - Fatigue [Not Recovered/Not Resolved]
  - Hunger [Not Recovered/Not Resolved]
  - Abdominal pain upper [Not Recovered/Not Resolved]
  - Peripheral swelling [Recovering/Resolving]
  - Gait disturbance [Not Recovered/Not Resolved]
  - Dyspnoea exertional [Not Recovered/Not Resolved]
  - Pain in extremity [Not Recovered/Not Resolved]
  - Frequent bowel movements [Not Recovered/Not Resolved]
  - Eructation [Not Recovered/Not Resolved]
  - Insomnia [Not Recovered/Not Resolved]
  - Headache [Recovered/Resolved]
  - Gastrointestinal sounds abnormal [Not Recovered/Not Resolved]
  - Limb discomfort [Not Recovered/Not Resolved]
  - Sleep disorder [Not Recovered/Not Resolved]
  - Binge eating [Not Recovered/Not Resolved]
  - Back pain [Not Recovered/Not Resolved]
  - Irritability [Unknown]
  - Anger [Unknown]
  - Pruritus [Not Recovered/Not Resolved]
  - Rash [Not Recovered/Not Resolved]
  - Diarrhoea [Not Recovered/Not Resolved]
  - Visual impairment [Not Recovered/Not Resolved]

NARRATIVE: CASE EVENT DATE: 20250101
